FAERS Safety Report 13700709 (Version 4)
Quarter: 2017Q3

REPORT INFORMATION
  Report Type: Report from Study
  Country: US (occurrence: US)
  Receive Date: 20170629
  Receipt Date: 20170912
  Transmission Date: 20171127
  Serious: Yes (Other)
  Sender: FDA-Public Use
  Company Number: US-BIOGEN-2017BI00424316

PATIENT
  Age: 51 Year
  Sex: Female

DRUGS (2)
  1. TYSABRI [Suspect]
     Active Substance: NATALIZUMAB
     Indication: MULTIPLE SCLEROSIS
     Dosage: INFUSED OVER 1 HOUR
     Route: 042
     Dates: start: 20150226
  2. AMPYRA [Concomitant]
     Indication: GAIT DISTURBANCE
     Route: 065
     Dates: start: 201502

REACTIONS (4)
  - Post procedural infection [Recovered/Resolved]
  - Depression [Recovered/Resolved]
  - Multiple sclerosis [Recovered/Resolved]
  - Breast necrosis [Recovered/Resolved]

NARRATIVE: CASE EVENT DATE: 201702
